FAERS Safety Report 9636298 (Version 1)
Quarter: 2013Q4

REPORT INFORMATION
  Report Type: Spontaneous
  Country: US (occurrence: US)
  Receive Date: 20131021
  Receipt Date: 20131021
  Transmission Date: 20140711
  Serious: No
  Sender: FDA-Public Use
  Company Number: US-PFIZER INC-2013298293

PATIENT
  Age: 36 Year
  Sex: Male
  Weight: 108.8 kg

DRUGS (6)
  1. ZIPRASIDONE HCL [Suspect]
     Indication: BIPOLAR DISORDER
     Dosage: 80MG IN MORNING AND 160MG AT NIGHT BY TAKING TWO 80MG CAPSULES TOGETHER
     Route: 048
  2. SEROQUEL [Concomitant]
     Dosage: UNK
  3. TRAZODONE [Concomitant]
     Dosage: UNK
  4. ATIVAN [Concomitant]
     Dosage: UNK
  5. SINGULAIR [Concomitant]
     Dosage: UNK
  6. FEXOFENADINE [Concomitant]
     Indication: HYPERSENSITIVITY
     Dosage: 180 MG, UNK

REACTIONS (1)
  - Drug ineffective [Unknown]
